FAERS Safety Report 9242193 (Version 2)
Quarter: 2013Q4

REPORT INFORMATION
  Report Type: Report from Study
  Country: JP (occurrence: JP)
  Receive Date: 20130419
  Receipt Date: 20131216
  Transmission Date: 20140711
  Serious: Yes (Other)
  Sender: FDA-Public Use
  Company Number: JP-ASTELLAS-2013JP004917

PATIENT
  Age: 87 Year
  Sex: Male
  Weight: 69.2 kg

DRUGS (7)
  1. MIRABEGRON [Suspect]
     Indication: HYPERTONIC BLADDER
     Dosage: 50 MG, UID/QD
     Route: 048
     Dates: start: 20130116
  2. CASODEX [Concomitant]
     Indication: PROSTATE CANCER
     Dosage: 80 MG, UNKNOWN/D
     Route: 048
  3. NU-LOTAN [Concomitant]
     Indication: HYPERTENSION
     Dosage: 50 MG, UNKNOWN/D
     Route: 048
  4. SUNRYTHM [Concomitant]
     Indication: ATRIAL FIBRILLATION
     Dosage: 150 MG, UNKNOWN/D
     Route: 048
  5. ATELEC [Concomitant]
     Indication: HYPERTENSION
     Dosage: 10 MG, UNKNOWN/D
     Route: 048
  6. SOLANTAL [Concomitant]
     Indication: OSTEOARTHRITIS
     Dosage: 100 MG, UNKNOWN/D
     Route: 048
     Dates: start: 20130205
  7. MUCOSTA [Concomitant]
     Indication: OSTEOARTHRITIS
     Dosage: 100 MG, UNKNOWN/D
     Route: 048
     Dates: start: 20130205

REACTIONS (2)
  - Osteoarthritis [Recovered/Resolved]
  - Lumbar spinal stenosis [Recovered/Resolved]
